FAERS Safety Report 13292175 (Version 1)
Quarter: 2017Q1

REPORT INFORMATION
  Report Type: Spontaneous
  Country: US (occurrence: US)
  Receive Date: 20170303
  Receipt Date: 20170303
  Transmission Date: 20170428
  Serious: Yes (Hospitalization)
  Sender: FDA-Public Use
  Company Number: None

PATIENT
  Age: 93 Year
  Sex: Female
  Weight: 63.9 kg

DRUGS (9)
  1. XARELTO [Concomitant]
     Active Substance: RIVAROXABAN
  2. ESCITALOPRAM [Concomitant]
     Active Substance: ESCITALOPRAM OXALATE
  3. PANTOPRAZOLE [Concomitant]
     Active Substance: PANTOPRAZOLE SODIUM
  4. GABAPENTIN. [Concomitant]
     Active Substance: GABAPENTIN
  5. DONEPEZIL. [Suspect]
     Active Substance: DONEPEZIL
     Indication: DEMENTIA ALZHEIMER^S TYPE
     Dosage: ?          QUANTITY:2 TABLET(S);?
     Route: 048
  6. LEVOTHYROXINE. [Concomitant]
     Active Substance: LEVOTHYROXINE
  7. MEDTRONIC PACEMAKER [Concomitant]
  8. DIVALPROEX [Concomitant]
     Active Substance: DIVALPROEX SODIUM
  9. RANEXA [Concomitant]
     Active Substance: RANOLAZINE

REACTIONS (4)
  - Blood pressure increased [None]
  - Electrocardiogram abnormal [None]
  - Vomiting [None]
  - Dehydration [None]

NARRATIVE: CASE EVENT DATE: 20170224
